FAERS Safety Report 8809971 (Version 7)
Quarter: 2014Q1

REPORT INFORMATION
  Report Type: Spontaneous
  Country: US (occurrence: US)
  Receive Date: 20120926
  Receipt Date: 20140328
  Transmission Date: 20141002
  Serious: Yes (Death, Hospitalization, Other)
  Sender: FDA-Public Use
  Company Number: US-009507513-1209USA008795

PATIENT
  Sex: Female
  Weight: 77.32 kg

DRUGS (5)
  1. FOSAMAX PLUS D [Suspect]
     Indication: OSTEOPOROSIS
     Dosage: 70 MG/2800 IU, UNK
     Route: 048
     Dates: start: 20071022
  2. FOSAMAX [Suspect]
     Indication: OSTEOPOROSIS
     Dosage: 70 MG, UNK
     Route: 048
     Dates: start: 20070919
  3. ALENDRONATE SODIUM [Suspect]
     Dosage: 70 MG, UNK
     Route: 048
     Dates: start: 20110211
  4. VITAMINS (UNSPECIFIED) [Concomitant]
     Dosage: 1000 MG, QD
     Dates: start: 1985, end: 20130329
  5. OMEPRAZOLE [Concomitant]
     Dosage: UNK
     Dates: start: 20070504, end: 20111205

REACTIONS (25)
  - Femur fracture [Unknown]
  - Intramedullary rod insertion [Unknown]
  - Femur fracture [Recovered/Resolved]
  - Intramedullary rod insertion [Unknown]
  - Aortic aneurysm [Not Recovered/Not Resolved]
  - Cardio-respiratory arrest [Fatal]
  - Fall [Unknown]
  - Pubis fracture [Unknown]
  - Depression [Unknown]
  - Impaired healing [Unknown]
  - Low turnover osteopathy [Unknown]
  - Tooth extraction [Unknown]
  - Cardiac failure congestive [Unknown]
  - Carotid bruit [Not Recovered/Not Resolved]
  - Dementia [Not Recovered/Not Resolved]
  - Cardiovascular disorder [Not Recovered/Not Resolved]
  - Type 2 diabetes mellitus [Unknown]
  - Pernicious anaemia [Not Recovered/Not Resolved]
  - Dementia Alzheimer^s type [Not Recovered/Not Resolved]
  - Dysthymic disorder [Not Recovered/Not Resolved]
  - Anxiety [Not Recovered/Not Resolved]
  - Osteoarthritis [Unknown]
  - Osteopenia [Unknown]
  - Avulsion fracture [Unknown]
  - Bone fragmentation [Unknown]
